FAERS Safety Report 4480827-0 (Version None)
Quarter: 2004Q4

REPORT INFORMATION
  Report Type: 
  Country: None (occurrence: None)
  Receive Date: 20041020
  Receipt Date: 20041020
  Transmission Date: 20050328
  Serious: Yes (Other)
  Sender: FDA-Public Use
  Company Number: None

PATIENT
  Age: 64 Year
  Sex: Male
  Weight: 98 kg

DRUGS (8)
  1. VALPROIC ACID [Suspect]
     Indication: CEREBROVASCULAR ACCIDENT
     Dosage: 500MG Q8H IV
     Route: 042
     Dates: start: 20040916, end: 20040927
  2. VALPROIC ACID [Suspect]
     Indication: CONVULSION
     Dosage: 500MG Q8H IV
     Route: 042
     Dates: start: 20040916, end: 20040927
  3. FENTANYL [Concomitant]
  4. ATIVAN [Concomitant]
  5. VANCOMYCIN [Concomitant]
  6. LEVAQUIN [Concomitant]
  7. ZOSYN [Concomitant]
  8. ERYTHROCIN [Concomitant]

REACTIONS (3)
  - NEUTROPHILIA [None]
  - SHIFT TO THE LEFT [None]
  - WHITE BLOOD CELL DISORDER [None]
